FAERS Safety Report 9786742 (Version 2)
Quarter: 2014Q1

REPORT INFORMATION
  Report Type: Spontaneous
  Country: GR (occurrence: GR)
  Receive Date: 20131227
  Receipt Date: 20140116
  Transmission Date: 20141002
  Serious: Yes (Other)
  Sender: FDA-Public Use
  Company Number: GR-BAXTER-2013BAX052639

PATIENT
  Age: 26 Week
  Sex: Male

DRUGS (1)
  1. FLUCONAZOLE REDIBAG/BAXTER 100MG/50ML SOLUTION FOR INFUSION [Suspect]
     Indication: FUNGAL INFECTION
     Route: 065

REACTIONS (2)
  - Drug ineffective [Unknown]
  - Mycetoma mycotic [Recovered/Resolved]
